FAERS Safety Report 10142222 (Version 35)
Quarter: 2017Q2

REPORT INFORMATION
  Report Type: Report from Study
  Country: CA (occurrence: CA)
  Receive Date: 20140430
  Receipt Date: 20170505
  Transmission Date: 20170829
  Serious: Yes (Hospitalization, Other)
  Sender: FDA-Public Use
  Company Number: CA-ROCHE-1319269

PATIENT
  Age: 52 Year
  Sex: Male
  Weight: 94 kg

DRUGS (19)
  1. CARBAMAZEPINE CR [Concomitant]
     Dosage: AT BEDTIME
     Route: 065
  2. ACTEMRA [Suspect]
     Active Substance: TOCILIZUMAB
     Route: 042
     Dates: start: 20150708
  3. CARBAMAZEPINE CR [Concomitant]
     Dosage: IN THE MORNING
     Route: 065
  4. MELOXICAM. [Concomitant]
     Active Substance: MELOXICAM
  5. LYRICA [Concomitant]
     Active Substance: PREGABALIN
  6. ROSUVASTATIN. [Concomitant]
     Active Substance: ROSUVASTATIN
     Route: 065
  7. PREGABALIN. [Concomitant]
     Active Substance: PREGABALIN
     Route: 065
  8. ADVAIR HFA [Concomitant]
     Active Substance: FLUTICASONE PROPIONATE\SALMETEROL XINAFOATE
  9. PREDNISONE. [Concomitant]
     Active Substance: PREDNISONE
     Route: 065
  10. ACTEMRA [Suspect]
     Active Substance: TOCILIZUMAB
     Indication: RHEUMATOID ARTHRITIS
     Route: 042
     Dates: start: 20130815
  11. CYMBALTA [Concomitant]
     Active Substance: DULOXETINE HYDROCHLORIDE
     Dosage: UNCERTAIN IF IT IS TWICE A DAY AS PER PHYSICIAN
     Route: 065
  12. PREDNISONE. [Concomitant]
     Active Substance: PREDNISONE
     Route: 065
  13. TEGRETOL [Concomitant]
     Active Substance: CARBAMAZEPINE
  14. HYDROXYCHLOROQUINE [Concomitant]
     Active Substance: HYDROXYCHLOROQUINE
     Route: 065
  15. ZOPICLONE [Concomitant]
     Active Substance: ZOPICLONE
     Dosage: AT BED TIME
     Route: 065
  16. ACTEMRA [Suspect]
     Active Substance: TOCILIZUMAB
     Route: 042
     Dates: start: 20150611
  17. ACTEMRA [Suspect]
     Active Substance: TOCILIZUMAB
     Route: 042
     Dates: start: 20161213
  18. PANTOLOC [Concomitant]
     Active Substance: PANTOPRAZOLE SODIUM
     Route: 065
  19. ATROVENT [Concomitant]
     Active Substance: IPRATROPIUM BROMIDE

REACTIONS (47)
  - Aneurysm [Not Recovered/Not Resolved]
  - Erythema [Unknown]
  - Paraesthesia oral [Unknown]
  - Abdominal pain [Unknown]
  - Asthenia [Recovered/Resolved]
  - Contusion [Unknown]
  - Limb injury [Unknown]
  - Visual impairment [Unknown]
  - Dizziness [Unknown]
  - Fatigue [Unknown]
  - Blood pressure diastolic decreased [Unknown]
  - Blood creatine phosphokinase increased [Unknown]
  - Infusion related reaction [Unknown]
  - Weight decreased [Unknown]
  - Laceration [Unknown]
  - Hypoaesthesia oral [Unknown]
  - Weight increased [Not Recovered/Not Resolved]
  - Infection [Unknown]
  - Cerebrovascular accident [Unknown]
  - Blood pressure diastolic abnormal [Unknown]
  - Somnolence [Unknown]
  - Rheumatoid arthritis [Not Recovered/Not Resolved]
  - Blood pressure increased [Unknown]
  - Wound infection [Recovering/Resolving]
  - Nausea [Recovering/Resolving]
  - Road traffic accident [Unknown]
  - Musculoskeletal pain [Not Recovered/Not Resolved]
  - Peripheral swelling [Not Recovered/Not Resolved]
  - Blood pressure fluctuation [Unknown]
  - Hypoaesthesia oral [Unknown]
  - Nystagmus [Unknown]
  - Pain [Not Recovered/Not Resolved]
  - Myalgia [Unknown]
  - Headache [Unknown]
  - Seizure [Not Recovered/Not Resolved]
  - Arthralgia [Unknown]
  - Joint swelling [Not Recovered/Not Resolved]
  - Body temperature decreased [Unknown]
  - Dry mouth [Unknown]
  - Synovial cyst [Recovered/Resolved]
  - Loss of consciousness [Not Recovered/Not Resolved]
  - Arthropathy [Unknown]
  - Pneumonia [Unknown]
  - Fall [Unknown]
  - Peripheral swelling [Not Recovered/Not Resolved]
  - Oxygen saturation decreased [Unknown]
  - Malaise [Unknown]

NARRATIVE: CASE EVENT DATE: 201312
